FAERS Safety Report 13434343 (Version 1)
Quarter: 2017Q2

REPORT INFORMATION
  Report Type: Spontaneous
  Country: US (occurrence: US)
  Receive Date: 20170413
  Receipt Date: 20170413
  Transmission Date: 20170830
  Serious: No
  Sender: FDA-Public Use
  Company Number: US-FERRINGPH-2016FE03443

PATIENT
  Sex: Male

DRUGS (2)
  1. FIRMAGON [Suspect]
     Active Substance: DEGARELIX ACETATE
     Indication: PROSTATE CANCER
     Dosage: 80 MG, EVERY 28 DAYS
     Route: 058
  2. FIRMAGON [Suspect]
     Active Substance: DEGARELIX ACETATE
     Dosage: 240 MG, ONCE/SINGLE
     Route: 058

REACTIONS (3)
  - Injection site reaction [Not Recovered/Not Resolved]
  - Injection site erythema [Not Recovered/Not Resolved]
  - Injection site cellulitis [Not Recovered/Not Resolved]
